FAERS Safety Report 8467482 (Version 10)
Quarter: 2012Q4

REPORT INFORMATION
  Report Type: 
  Country: CA (occurrence: CA)
  Receive Date: 20120320
  Receipt Date: 20121104
  Transmission Date: 20130627
  Serious: Yes (Hospitalization, Other)
  Sender: FDA-Public Use
  Company Number: PHHY2011CA95756

PATIENT
  Sex: Male

DRUGS (4)
  1. SANDOSTATIN LAR [Suspect]
     Indication: CARCINOID TUMOUR
     Dosage: 30 mg, every 2 weeks
     Route: 030
     Dates: start: 20071119
  2. SANDOSTATIN LAR [Suspect]
     Dosage: 30 mg, every 2 weeks
     Route: 030
     Dates: start: 20120815
  3. FENTANYL [Concomitant]
     Dosage: 37 mg, every 3 days
  4. DILAUDID [Concomitant]

REACTIONS (16)
  - Pulmonary oedema [Unknown]
  - Traumatic lung injury [Unknown]
  - Vomiting [Unknown]
  - Malignant neoplasm progression [Unknown]
  - Diarrhoea [Recovering/Resolving]
  - Frequent bowel movements [Unknown]
  - Blood pressure increased [Unknown]
  - Oedema peripheral [Unknown]
  - Malaise [Unknown]
  - Generalised oedema [Recovering/Resolving]
  - Muscle spasms [Unknown]
  - Heart rate increased [Unknown]
  - Asthenia [Unknown]
  - Fatigue [Unknown]
  - Abdominal discomfort [Unknown]
  - Dyspnoea [Recovering/Resolving]
